FAERS Safety Report 9821408 (Version 1)
Quarter: 2014Q1

REPORT INFORMATION
  Report Type: Spontaneous
  Country: FR (occurrence: FR)
  Receive Date: 20140116
  Receipt Date: 20140116
  Transmission Date: 20141002
  Serious: Yes (Hospitalization)
  Sender: FDA-Public Use
  Company Number: FR-ELI_LILLY_AND_COMPANY-FR201401001018

PATIENT
  Age: 62 Year
  Sex: Male

DRUGS (3)
  1. ALIMTA [Suspect]
     Indication: PRODUCT USED FOR UNKNOWN INDICATION
     Dosage: 500 MG/M2, UNKNOWN
     Route: 042
     Dates: start: 20130109, end: 20130626
  2. METFORMINE [Suspect]
     Indication: PRODUCT USED FOR UNKNOWN INDICATION
     Dosage: 1000 MG, TID
     Route: 048
     Dates: end: 201307
  3. CARBOPLATIN [Concomitant]

REACTIONS (3)
  - Nephrogenic diabetes insipidus [Recovered/Resolved]
  - Renal failure [Recovering/Resolving]
  - Off label use [Unknown]
